FAERS Safety Report 22112132 (Version 1)
Quarter: 2023Q1

REPORT INFORMATION
  Report Type: Spontaneous
  Country: FR (occurrence: FR)
  Receive Date: 20230318
  Receipt Date: 20230318
  Transmission Date: 20230417
  Serious: Yes (Hospitalization, Other)
  Sender: FDA-Public Use
  Company Number: FR-AFSSAPS-LY2023000343

PATIENT
  Sex: Female

DRUGS (9)
  1. NEBIVOLOL [Suspect]
     Active Substance: NEBIVOLOL
     Indication: Product used for unknown indication
     Dosage: 10 MILLIGRAM, ONCE A DAY
     Route: 064
     Dates: start: 2022, end: 202211
  2. NEBIVOLOL [Suspect]
     Active Substance: NEBIVOLOL
     Dosage: 5 MILLIGRAM, ONCE A DAY
     Route: 064
     Dates: start: 202211, end: 20221202
  3. KARDEGIC [Concomitant]
     Active Substance: ASPIRIN DL-LYSINE
     Indication: Product used for unknown indication
     Dosage: 160 MILLIGRAM, ONCE A DAY
     Route: 064
     Dates: start: 2022, end: 202211
  4. KARDEGIC [Concomitant]
     Active Substance: ASPIRIN DL-LYSINE
     Dosage: 75 MILLIGRAM, ONCE A DAY
     Route: 064
     Dates: start: 202211, end: 20221202
  5. ALBUTEROL [Concomitant]
     Active Substance: ALBUTEROL
     Indication: Product used for unknown indication
     Dosage: UNK
     Route: 064
     Dates: start: 2022, end: 20221202
  6. OMEPRAZOLE [Concomitant]
     Active Substance: OMEPRAZOLE
     Indication: Product used for unknown indication
     Dosage: 20 MILLIGRAM, ONCE A DAY
     Route: 064
     Dates: start: 2022, end: 20221202
  7. ATORVASTATIN [Concomitant]
     Active Substance: ATORVASTATIN
     Indication: Product used for unknown indication
     Dosage: 1 DOSAGE FORM, ONCE A DAY
     Route: 064
     Dates: start: 2022, end: 20221202
  8. MONTELUKAST [Concomitant]
     Active Substance: MONTELUKAST SODIUM
     Indication: Product used for unknown indication
     Dosage: UNK
     Route: 064
     Dates: start: 2022, end: 20221202
  9. EBASTINE [Concomitant]
     Active Substance: EBASTINE
     Indication: Product used for unknown indication
     Dosage: 5 MILLIGRAM, ONCE A DAY
     Route: 064
     Dates: start: 2022, end: 20221202

REACTIONS (1)
  - Foetal growth restriction [Recovering/Resolving]

NARRATIVE: CASE EVENT DATE: 20221101
